FAERS Safety Report 5726584-9 (Version None)
Quarter: 2008Q2

REPORT INFORMATION
  Report Type: 
  Country: None (occurrence: None)
  Receive Date: 20080502
  Receipt Date: 20080419
  Transmission Date: 20081010
  Serious: Yes (Hospitalization, Other)
  Sender: FDA-Public Use
  Company Number: GR-BAYER-200816240GPV

PATIENT
  Age: 69 Year
  Sex: Male
  Weight: 68 kg

DRUGS (3)
  1. NEXAVAR [Suspect]
     Indication: HEPATIC NEOPLASM MALIGNANT
     Dosage: UNIT DOSE: 200 MG
     Route: 048
     Dates: start: 20080313, end: 20080325
  2. NEXAVAR [Suspect]
     Dosage: TOTAL DAILY DOSE: 400 MG  UNIT DOSE: 200 MG
     Route: 048
     Dates: start: 20080220, end: 20080305
  3. NEXAVAR [Suspect]
     Dosage: TOTAL DAILY DOSE: 800 MG  UNIT DOSE: 200 MG
     Route: 048
     Dates: start: 20080129, end: 20080208

REACTIONS (4)
  - ABDOMINAL PAIN [None]
  - GASTRIC PERFORATION [None]
  - JAUNDICE [None]
  - PNEUMOPERITONEUM [None]
